FAERS Safety Report 9105365 (Version 1)
Quarter: 2013Q1

REPORT INFORMATION
  Report Type: Report from Study
  Country: JP (occurrence: JP)
  Receive Date: 20130220
  Receipt Date: 20130220
  Transmission Date: 20140127
  Serious: Yes (Hospitalization)
  Sender: FDA-Public Use
  Company Number: JP-GLAXOSMITHKLINE-B0868049A

PATIENT
  Age: 66 Year
  Sex: Female
  Weight: 56 kg

DRUGS (14)
  1. TYKERB [Suspect]
     Indication: BREAST CANCER
     Route: 048
     Dates: start: 20120814, end: 20130212
  2. HERCEPTIN [Suspect]
     Indication: BREAST CANCER
     Route: 042
     Dates: start: 20120814
  3. HERCEPTIN [Suspect]
     Indication: BREAST CANCER
     Route: 042
  4. HERCEPTIN [Suspect]
     Indication: BREAST CANCER
     Route: 042
  5. HERCEPTIN [Suspect]
     Indication: BREAST CANCER
     Route: 042
     Dates: end: 20130204
  6. PACLITAXEL [Suspect]
     Indication: BREAST CANCER
     Route: 042
     Dates: start: 20121218, end: 20130204
  7. LOPERAMIDE [Concomitant]
     Indication: DIARRHOEA
     Route: 048
     Dates: start: 20120814
  8. SODIUM ALGINATE [Concomitant]
     Indication: DERMATITIS ACNEIFORM
     Route: 061
     Dates: start: 20121106
  9. WHITE PETROLATUM [Concomitant]
     Indication: PARONYCHIA
     Route: 061
     Dates: start: 20121106
  10. LOCOID [Concomitant]
     Indication: DERMATITIS ACNEIFORM
     Route: 061
     Dates: start: 20121106
  11. MYSER [Concomitant]
     Indication: PARONYCHIA
     Route: 061
     Dates: start: 20121106
  12. NEXIUM [Concomitant]
     Indication: GASTRITIS
     Dosage: 1IUAX PER DAY
     Route: 048
     Dates: start: 20130204
  13. CHINESE MEDICINE [Concomitant]
     Indication: MYALGIA
     Route: 048
     Dates: start: 20130115
  14. RINDERON VG [Concomitant]
     Indication: DERMATITIS ACNEIFORM
     Route: 061
     Dates: start: 20120828

REACTIONS (2)
  - Diarrhoea [Recovered/Resolved]
  - Febrile neutropenia [Recovered/Resolved]
